FAERS Safety Report 15286148 (Version 1)
Quarter: 2018Q4

REPORT INFORMATION
  Report Type: Spontaneous
  Country: ES (occurrence: ES)
  Receive Date: 20180816
  Receipt Date: 20180816
  Transmission Date: 20190204
  Serious: Yes (Other)
  Sender: FDA-Public Use
  Company Number: ES-TEVA-2018-ES-942402

PATIENT
  Age: 33 Year
  Sex: Male

DRUGS (4)
  1. ALOPURINOL (318A) [Suspect]
     Active Substance: ALLOPURINOL
     Dosage: 150 MILLIGRAM DAILY;
     Route: 048
     Dates: start: 2014
  2. PREDNISOLONA [Concomitant]
     Active Substance: PREDNISOLONE
     Indication: PLATELET COUNT DECREASED
     Dosage: 5 MILLIGRAM DAILY; 5 MG/DIA CURRENTLY, STARTED ON 15/06/2017 PREDNISONE 60MG/DAY, 27/06/2017 DECREAS
     Route: 048
     Dates: start: 20170616
  3. FERO-GRADUMET 105 MG COMPRIMIDOS DE LIBERACION PROLONGADA., 30 COMPRIM [Concomitant]
     Dosage: 210 MILLIGRAM DAILY;
     Route: 048
  4. TOCILIZUMAB (8289A) [Suspect]
     Active Substance: TOCILIZUMAB
     Indication: MUCKLE-WELLS SYNDROME
     Route: 042
     Dates: start: 20120316, end: 20180502

REACTIONS (1)
  - Platelet count decreased [Not Recovered/Not Resolved]

NARRATIVE: CASE EVENT DATE: 20150519
